FAERS Safety Report 4668022-3 (Version None)
Quarter: 2005Q2

REPORT INFORMATION
  Report Type: 
  Country: None (occurrence: None)
  Receive Date: 20050520
  Receipt Date: 20050419
  Transmission Date: 20051028
  Serious: Yes (Life-Threatening, Hospitalization, Disabling, Other)
  Sender: FDA-Public Use
  Company Number: US-MERCK-0504USA03462

PATIENT
  Age: 72 Year
  Sex: Male
  Weight: 78 kg

DRUGS (16)
  1. ZOCOR [Suspect]
     Indication: BLOOD CHOLESTEROL INCREASED
     Route: 048
     Dates: start: 20050302, end: 20050323
  2. ZOCOR [Suspect]
     Route: 048
  3. ZOCOR [Suspect]
     Indication: HYPERLIPIDAEMIA
     Route: 048
     Dates: start: 20050302, end: 20050323
  4. ZOCOR [Suspect]
     Route: 048
  5. GEMFIBROZIL [Concomitant]
     Indication: HYPERLIPIDAEMIA
     Route: 048
     Dates: start: 20050201, end: 20050323
  6. METOPROLOL [Concomitant]
     Indication: HYPERTENSION
     Route: 048
     Dates: start: 20050201
  7. CELEXA [Concomitant]
     Indication: DEPRESSION
     Route: 048
     Dates: start: 20050201, end: 20050412
  8. PLAVIX [Concomitant]
     Indication: CEREBROVASCULAR ACCIDENT
     Route: 048
     Dates: start: 20050201, end: 20050323
  9. CARDURA [Concomitant]
     Route: 048
     Dates: start: 20050201
  10. ASPIRIN [Concomitant]
     Route: 048
  11. VITAMINS (UNSPECIFIED) [Concomitant]
     Route: 065
  12. ALBUTEROL [Concomitant]
     Route: 055
  13. COMBIVENT [Concomitant]
     Route: 055
  14. PEPCID [Concomitant]
     Route: 048
  15. NORVASC [Concomitant]
     Route: 065
  16. VICODIN [Concomitant]
     Indication: PAIN
     Route: 065

REACTIONS (8)
  - DEHYDRATION [None]
  - DRUG INTERACTION [None]
  - HEPATITIS ACUTE [None]
  - LEUKOCYTOSIS [None]
  - MYOSITIS [None]
  - OVERDOSE [None]
  - RENAL FAILURE ACUTE [None]
  - RHABDOMYOLYSIS [None]
